FAERS Safety Report 6997487-7 (Version None)
Quarter: 2010Q3

REPORT INFORMATION
  Report Type: 
  Country: None (occurrence: None)
  Receive Date: 20100918
  Receipt Date: 20091021
  Transmission Date: 20110219
  Serious: No
  Sender: FDA-Public Use
  Company Number: US-WYE-H11813809

PATIENT
  Sex: Female
  Weight: 66.74 kg

DRUGS (1)
  1. PREMPRO [Suspect]
     Indication: HORMONE REPLACEMENT THERAPY
     Route: 048
     Dates: end: 20091001

REACTIONS (6)
  - ABDOMINAL PAIN [None]
  - BREAST TENDERNESS [None]
  - HEADACHE [None]
  - LIP SWELLING [None]
  - NAUSEA [None]
  - PARAESTHESIA ORAL [None]
